FAERS Safety Report 7771523-2 (Version None)
Quarter: 2011Q3

REPORT INFORMATION
  Report Type: 
  Country: None (occurrence: None)
  Receive Date: 20110922
  Receipt Date: 20110909
  Transmission Date: 20111222
  Serious: No
  Sender: FDA-Public Use
  Company Number: US-B.I. PHARMACEUTICALS,INC./RIDGEFIELD-2011-BP-21951BP

PATIENT
  Sex: Male
  Weight: 83.46 kg

DRUGS (2)
  1. PRADAXA [Suspect]
     Indication: ATRIAL FIBRILLATION
     Dosage: 300 MG
     Route: 048
     Dates: start: 20110101
  2. RYTHMOL [Concomitant]
     Indication: ATRIAL FIBRILLATION

REACTIONS (3)
  - PROCTALGIA [None]
  - CONSTIPATION [None]
  - SWELLING [None]
